FAERS Safety Report 7687456-6 (Version None)
Quarter: 2011Q3

REPORT INFORMATION
  Report Type: 
  Country: None (occurrence: None)
  Receive Date: 20110816
  Receipt Date: 20110808
  Transmission Date: 20111222
  Serious: Yes (Other)
  Sender: FDA-Public Use
  Company Number: US-CEPHALON-US023275

PATIENT
  Sex: Male
  Weight: 90 kg

DRUGS (13)
  1. RISPERDAL [Suspect]
     Route: 048
     Dates: start: 20080101
  2. CELEXA [Concomitant]
     Indication: DEPRESSION
     Route: 048
     Dates: start: 20080201
  3. RESTORIL [Concomitant]
     Indication: INSOMNIA
     Route: 048
     Dates: start: 20080101
  4. RISPERDAL [Suspect]
     Indication: PSYCHOTIC DISORDER
     Route: 048
     Dates: end: 20080101
  5. LITHIUM [Concomitant]
     Indication: BIPOLAR DISORDER
  6. SYNTHROID [Concomitant]
     Indication: HYPOTHYROIDISM
     Route: 048
  7. PROVIGIL [Suspect]
     Indication: POOR QUALITY SLEEP
  8. PREDNISONE [Concomitant]
     Indication: DERMATITIS CONTACT
     Route: 048
     Dates: start: 20080409
  9. RISPERDAL [Suspect]
     Route: 048
     Dates: start: 20080101
  10. KLONOPIN [Concomitant]
     Indication: AFFECTIVE DISORDER
     Route: 048
     Dates: start: 20080201
  11. LEXAPRO [Concomitant]
     Indication: DEPRESSION
     Route: 048
     Dates: start: 20000101
  12. LITHIUM [Concomitant]
     Indication: BIPOLAR I DISORDER
     Route: 048
     Dates: start: 19930101
  13. PROVIGIL [Suspect]
     Indication: FATIGUE
     Route: 048
     Dates: start: 20080201

REACTIONS (11)
  - FATIGUE [None]
  - EUPHORIC MOOD [None]
  - RIB FRACTURE [None]
  - FRUSTRATION [None]
  - ALCOHOL ABUSE [None]
  - SELF INJURIOUS BEHAVIOUR [None]
  - MUSCULAR WEAKNESS [None]
  - EXPOSURE TO TOXIC AGENT [None]
  - ABNORMAL BEHAVIOUR [None]
  - AFFECT LABILITY [None]
  - AGGRESSION [None]
